FAERS Safety Report 10373565 (Version 4)
Quarter: 2014Q3

REPORT INFORMATION
  Report Type: Report from Study
  Country: DE (occurrence: DE)
  Receive Date: 20140808
  Receipt Date: 20140829
  Transmission Date: 20150326
  Serious: Yes (Hospitalization)
  Sender: FDA-Public Use
  Company Number: DE-GILEAD-2014-0104548

PATIENT
  Age: 75 Year
  Sex: Female
  Weight: 65 kg

DRUGS (16)
  1. TOLPERISON HCL DURA [Concomitant]
     Indication: FIBROMYALGIA
     Dosage: UNK
     Dates: start: 201302
  2. NOVALGIN [Concomitant]
     Active Substance: METAMIZOLE SODIUM
     Indication: MYALGIA
     Dosage: UNK
     Dates: start: 20130926
  3. FAVISTAN [Concomitant]
     Indication: HYPOTHYROIDISM
     Dosage: UNK
     Dates: start: 2014
  4. IRENAT [Concomitant]
     Active Substance: POTASSIUM PERCHLORATE
     Indication: HYPOTHYROIDISM
     Dosage: UNK
     Dates: start: 20140515, end: 20140620
  5. LIPOTALON [Concomitant]
     Dosage: UNK
  6. LOPERAMIDE [Concomitant]
     Active Substance: LOPERAMIDE
     Indication: DIARRHOEA
     Dosage: UNK
     Dates: start: 20140504
  7. IDELALISIB [Suspect]
     Active Substance: IDELALISIB
     Indication: CHRONIC LYMPHOCYTIC LEUKAEMIA
     Dosage: 150 MG, BID
     Route: 048
     Dates: start: 20130718, end: 20140606
  8. IODIDE [Concomitant]
     Indication: HYPOTHYROIDISM
     Dosage: UNK
     Dates: start: 201209
  9. REKAWAN [Concomitant]
     Active Substance: POTASSIUM CHLORIDE
     Indication: BLOOD POTASSIUM DECREASED
     Dosage: UNK
     Dates: start: 20140325, end: 201406
  10. LEVOTHYROXIN [Concomitant]
     Active Substance: LEVOTHYROXINE
     Indication: HYPOTHYROIDISM
     Dosage: UNK
     Dates: start: 20120903
  11. KALINOR                            /00031402/ [Concomitant]
     Active Substance: POTASSIUM CITRATE
     Indication: BLOOD POTASSIUM DECREASED
     Dosage: UNK
     Dates: start: 201404, end: 201406
  12. AMPHO-MORONAL [Concomitant]
     Active Substance: AMPHOTERICIN B
     Indication: MOUTH ULCERATION
     Dosage: UNK
     Dates: start: 201406, end: 201406
  13. OXYCODONE [Concomitant]
     Active Substance: OXYCODONE
     Indication: PAIN
     Dosage: UNK
     Dates: start: 20140413
  14. FUROSEMIDE. [Concomitant]
     Active Substance: FUROSEMIDE
     Indication: OEDEMA
     Dosage: UNK
     Dates: start: 201405
  15. AMITRIPTYLINE [Concomitant]
     Active Substance: AMITRIPTYLINE
     Indication: FIBROMYALGIA
     Dosage: UNK
     Dates: start: 200403
  16. TARGIN [Concomitant]
     Active Substance: NALOXONE HYDROCHLORIDE\OXYCODONE HYDROCHLORIDE
     Indication: MYALGIA
     Dosage: UNK
     Dates: start: 20140319

REACTIONS (3)
  - Gastritis [Recovered/Resolved]
  - Oesophagitis [Recovered/Resolved]
  - General physical health deterioration [Recovered/Resolved]

NARRATIVE: CASE EVENT DATE: 20140603
